FAERS Safety Report 6211363-9 (Version None)
Quarter: 2009Q2

REPORT INFORMATION
  Report Type: 
  Country: None (occurrence: None)
  Receive Date: 20090528
  Receipt Date: 20090512
  Transmission Date: 20091009
  Serious: Yes (Other)
  Sender: FDA-Public Use
  Company Number: B0575330A

PATIENT

DRUGS (2)
  1. MELPHALAN (FORMULATION UNKNOWN) (MELPHALAN) (GENERIC) [Suspect]
     Indication: NEOPLASM
     Dosage: 7.5 MG/LITRE
  2. DACTINOMYCIN [Suspect]
     Indication: NEOPLASM
     Dosage: 75 UG/LITRE

REACTIONS (1)
  - DRUG TOXICITY [None]
